FAERS Safety Report 15604166 (Version 1)
Quarter: 2018Q4

REPORT INFORMATION
  Report Type: Spontaneous
  Country: US (occurrence: US)
  Receive Date: 20181110
  Receipt Date: 20181110
  Transmission Date: 20190205
  Serious: Yes (Hospitalization)
  Sender: FDA-Public Use
  Company Number: US-TRIS PHARMA, INC.-2018TRISPO01174

PATIENT

DRUGS (3)
  1. GUANFACINE. [Concomitant]
     Active Substance: GUANFACINE
     Indication: PRODUCT USED FOR UNKNOWN INDICATION
     Dosage: 1 ML, TWO TIMES A DAY
     Route: 065
  2. HYDROXYZINE [Concomitant]
     Active Substance: HYDROXYZINE HYDROCHLORIDE
     Indication: SLEEP DISORDER
     Dosage: 20 MG, AT NIGHT
     Route: 065
  3. DYANAVEL XR [Suspect]
     Active Substance: AMPHETAMINE
     Indication: ATTENTION DEFICIT/HYPERACTIVITY DISORDER
     Dosage: 2.5 MG, ONCE A DAY
     Route: 065
     Dates: start: 20181006, end: 20181021

REACTIONS (4)
  - Agitation [Recovering/Resolving]
  - Hallucination [Recovering/Resolving]
  - Impatience [Recovering/Resolving]
  - Anger [Recovering/Resolving]

NARRATIVE: CASE EVENT DATE: 201810
